FAERS Safety Report 13719918 (Version 1)
Quarter: 2017Q3

REPORT INFORMATION
  Report Type: Report from Study
  Country: US (occurrence: BR)
  Receive Date: 20170705
  Receipt Date: 20170705
  Transmission Date: 20171127
  Serious: Yes (Death, Other)
  Sender: FDA-Public Use
  Company Number: US-SUNOVION-2017SUN002810

PATIENT
  Sex: Male
  Weight: 62 kg

DRUGS (1)
  1. INDACATEROL AND GLYCOPYRROLATE [Suspect]
     Active Substance: GLYCOPYRROLATE\INDACATEROL MALEATE
     Indication: CHRONIC OBSTRUCTIVE PULMONARY DISEASE
     Dosage: UNK UNK, BID
     Route: 055
     Dates: start: 2016

REACTIONS (6)
  - Cardiac failure [Fatal]
  - Weight decreased [Unknown]
  - Chronic obstructive pulmonary disease [Fatal]
  - Malaise [Unknown]
  - Drug prescribing error [Unknown]
  - Gastrointestinal haemorrhage [Fatal]
